FAERS Safety Report 20199767 (Version 1)
Quarter: 2021Q4

REPORT INFORMATION
  Report Type: Spontaneous
  Country: US (occurrence: US)
  Receive Date: 20211217
  Receipt Date: 20211217
  Transmission Date: 20220303
  Serious: No
  Sender: FDA-Public Use
  Company Number: US-ORG100016242-2021000551

PATIENT
  Age: 64 Year
  Sex: Female

DRUGS (1)
  1. EXPAREL [Suspect]
     Active Substance: BUPIVACAINE
     Dosage: NOT PROVIDED
     Route: 050

REACTIONS (7)
  - Emotional distress [Unknown]
  - Drug ineffective [Unknown]
  - Pain [Unknown]
  - Swelling [Unknown]
  - Contusion [Unknown]
  - Rash [Unknown]
  - Pruritus [Unknown]
